FAERS Safety Report 8991013 (Version 1)
Quarter: 2012Q4

REPORT INFORMATION
  Report Type: 
  Country: JP (occurrence: JP)
  Receive Date: 20121231
  Receipt Date: 20121231
  Transmission Date: 20130627
  Serious: Yes (Hospitalization, Congenital Anomaly, Other)
  Sender: FDA-Public Use
  Company Number: JP-009507513-2009SP021569

PATIENT
  Sex: Female
  Weight: 1.21 kg

DRUGS (18)
  1. PEGINTERFERON ALFA-2B [Suspect]
     Indication: MATERNAL EXPOSURE DURING PREGNANCY
     Dosage: UNK
     Route: 064
     Dates: start: 20080910, end: 20090527
  2. RIBAVIRIN [Suspect]
     Indication: MATERNAL EXPOSURE DURING PREGNANCY
     Dosage: UNK
     Route: 064
     Dates: start: 20080910, end: 20090601
  3. LOXOPROFEN [Suspect]
     Indication: MATERNAL EXPOSURE DURING PREGNANCY
     Dosage: UNK
     Route: 064
     Dates: start: 20080911, end: 20090220
  4. TAKEPRON [Suspect]
     Indication: MATERNAL EXPOSURE DURING PREGNANCY
     Route: 064
     Dates: start: 20080919, end: 20080925
  5. TAKEPRON [Suspect]
     Dosage: UNK
     Route: 064
     Dates: start: 20081001, end: 20090617
  6. ETIZOLAM [Suspect]
     Indication: MATERNAL EXPOSURE DURING PREGNANCY
     Dosage: UNK
     Route: 064
     Dates: start: 20080916, end: 20080916
  7. ETIZOLAM [Suspect]
     Dosage: UNK
     Route: 064
     Dates: start: 20080919, end: 20080920
  8. ETIZOLAM [Suspect]
     Dosage: UNK
     Route: 064
     Dates: start: 20080921, end: 20081029
  9. ETIZOLAM [Suspect]
     Dosage: UNK
     Route: 064
     Dates: start: 20081105, end: 20090531
  10. DOMPERIDONE [Suspect]
     Indication: MATERNAL EXPOSURE DURING PREGNANCY
     Route: 064
     Dates: start: 20081029, end: 20090110
  11. DANAPAROID SODIUM [Suspect]
     Indication: MATERNAL EXPOSURE DURING PREGNANCY
     Route: 064
     Dates: start: 20081105, end: 20081224
  12. RESTAMIN [Suspect]
     Indication: MATERNAL EXPOSURE DURING PREGNANCY
     Dosage: UNK
     Route: 064
     Dates: start: 20080913, end: 20080915
  13. RESTAMIN [Suspect]
     Dosage: UNK
     Route: 064
     Dates: start: 20081015, end: 20090311
  14. RESTAMIN [Suspect]
     Indication: MATERNAL EXPOSURE DURING PREGNANCY
     Dosage: UNK
     Route: 064
     Dates: start: 20080913, end: 20080916
  15. EBASTEL [Concomitant]
     Indication: MATERNAL EXPOSURE DURING PREGNANCY
     Dosage: THE MALE PARTNER RECEIVED 10MG TAB PO OD FOR RASH AND ITCHING
     Route: 064
     Dates: start: 20080917, end: 20080923
  16. ACETAMINOPHEN (+) CAFFEINE (+) PROMETHAZINE METHYLENEDISALICYLATE (+) [Concomitant]
     Indication: MATERNAL EXPOSURE DURING PREGNANCY
     Dosage: THE MALE PARTNER RECEIVED 1G GRN PO OD FOR COLD SYMTOPS
     Route: 064
     Dates: start: 20081008, end: 20081021
  17. MUCOSIL [Concomitant]
     Indication: MATERNAL EXPOSURE DURING PREGNANCY
     Dosage: THE MALE PARTNER RECEIVED 15MG TAB PO TID FOR COLD SYMPTOMS
     Route: 064
     Dates: start: 20081022, end: 20081029
  18. NEODAY [Concomitant]
     Indication: MATERNAL EXPOSURE DURING PREGNANCY
     Dosage: THE MALE PARTNER RECEIVED 1 TAB PO PRN FOR INSOMNIA
     Route: 064
     Dates: start: 20081030, end: 20081104

REACTIONS (7)
  - Meningocele [Recovered/Resolved with Sequelae]
  - Cerebral ventricle dilatation [Recovered/Resolved with Sequelae]
  - Low birth weight baby [Recovered/Resolved]
  - Asthma [Recovered/Resolved]
  - Foetal exposure during pregnancy [Recovered/Resolved]
  - Motor developmental delay [Not Recovered/Not Resolved]
  - Mental retardation [Not Recovered/Not Resolved]
